FAERS Safety Report 11788614 (Version 1)
Quarter: 2015Q4

REPORT INFORMATION
  Report Type: Spontaneous
  Country: US (occurrence: US)
  Receive Date: 20151201
  Receipt Date: 20151201
  Transmission Date: 20160305
  Serious: No
  Sender: FDA-Public Use
  Company Number: US-PAR PHARMACEUTICAL, INC-2014SCPR009476

PATIENT

DRUGS (1)
  1. IMIPRAMINE HCL [Suspect]
     Active Substance: IMIPRAMINE HYDROCHLORIDE
     Indication: PRODUCT USED FOR UNKNOWN INDICATION
     Dosage: UNK UNK, UNKNOWN
     Route: 048
     Dates: start: 201410, end: 201410

REACTIONS (3)
  - Glossodynia [Recovered/Resolved]
  - Product taste abnormal [Recovered/Resolved]
  - Glossodynia [None]

NARRATIVE: CASE EVENT DATE: 201410
